FAERS Safety Report 4410966-1 (Version None)
Quarter: 2004Q2

REPORT INFORMATION
  Report Type: 
  Country: None (occurrence: None)
  Receive Date: 20040630
  Receipt Date: 20040504
  Transmission Date: 20050107
  Serious: No
  Sender: FDA-Public Use
  Company Number: 04P-163-0259604-00

PATIENT
  Age: 80 Year
  Sex: Female
  Weight: 57.6068 kg

DRUGS (8)
  1. HUMIRA [Suspect]
     Indication: RHEUMATOID ARTHRITIS
     Dosage: 40 MG, 1 IN 2 WK, SUBCUTANEOUS
     Route: 058
     Dates: start: 20040227, end: 20040329
  2. BENAZEPRIL HCL [Concomitant]
  3. SULFASALAZINE [Concomitant]
  4. PREDNISONE [Concomitant]
  5. RISEDRONATE SODIUM [Concomitant]
  6. ASPIRIN [Concomitant]
  7. CALCIUM CARBONATE [Concomitant]
  8. ESTROGEN NOS [Concomitant]

REACTIONS (2)
  - FUNGAL INFECTION [None]
  - RASH [None]
